FAERS Safety Report 21235450 (Version 3)
Quarter: 2023Q1

REPORT INFORMATION
  Report Type: Other
  Country: JP (occurrence: JP)
  Receive Date: 20220821
  Receipt Date: 20230104
  Transmission Date: 20230417
  Serious: Yes (Hospitalization, Other)
  Sender: FDA-Public Use
  Company Number: JP-CHUGAI-2022031257

PATIENT
  Age: 72 Year
  Sex: Male

DRUGS (2)
  1. CAPECITABINE [Suspect]
     Active Substance: CAPECITABINE
     Indication: Adenocarcinoma of colon
     Route: 048
  2. OXALIPLATIN [Concomitant]
     Active Substance: OXALIPLATIN
     Indication: Adenocarcinoma of colon
     Dosage: 240 MILLIGRAM
     Route: 041

REACTIONS (6)
  - Venoocclusive liver disease [Unknown]
  - Renal impairment [Unknown]
  - Varices oesophageal [Unknown]
  - Platelet count decreased [Unknown]
  - Neuropathy peripheral [Unknown]
  - Metastases to liver [Unknown]
